FAERS Safety Report 8848194 (Version 1)
Quarter: 2012Q4

REPORT INFORMATION
  Report Type: 
  Country: US (occurrence: US)
  Receive Date: 20121018
  Receipt Date: 20121018
  Transmission Date: 20130627
  Serious: Yes (Other)
  Sender: FDA-Public Use
  Company Number: US-PFIZER INC-2012257258

PATIENT
  Age: 69 Year
  Sex: Male
  Weight: 97.51 kg

DRUGS (2)
  1. LIPITOR [Suspect]
     Indication: BLOOD CHOLESTEROL INCREASED
     Dosage: 40 mg, 1x/day
     Route: 048
     Dates: start: 2009, end: 201204
  2. ATORVASTATIN CALCIUM [Suspect]
     Indication: BLOOD CHOLESTEROL INCREASED
     Dosage: 40 mg, 1x/day
     Route: 048
     Dates: start: 2012

REACTIONS (5)
  - Cerebrovascular accident [Unknown]
  - Blindness transient [Unknown]
  - Arthropathy [Unknown]
  - Amnesia [Unknown]
  - Visual impairment [Unknown]
